FAERS Safety Report 10728397 (Version 1)
Quarter: 2015Q1

REPORT INFORMATION
  Report Type: Report from Study
  Country: US (occurrence: US)
  Receive Date: 20150122
  Receipt Date: 20150122
  Transmission Date: 20150721
  Serious: Yes (Death, Hospitalization, Other)
  Sender: FDA-Public Use
  Company Number: GXBR2015US000496

PATIENT
  Age: 69 Year
  Sex: Male

DRUGS (1)
  1. ENOXAPARIN SODIUM. [Suspect]
     Active Substance: ENOXAPARIN SODIUM
     Indication: PULMONARY EMBOLISM
     Dosage: 90 MG, Q12H
     Route: 058

REACTIONS (7)
  - Blood count abnormal [Unknown]
  - Aphasia [Unknown]
  - Seizure [Unknown]
  - Death [Fatal]
  - Pyrexia [Unknown]
  - Vomiting [Unknown]
  - Hypophagia [Unknown]

NARRATIVE: CASE EVENT DATE: 2014
